FAERS Safety Report 17367861 (Version 9)
Quarter: 2020Q2

REPORT INFORMATION
  Report Type: Spontaneous
  Country: GB (occurrence: GB)
  Receive Date: 20200204
  Receipt Date: 20200604
  Transmission Date: 20200713
  Serious: Yes (Life-Threatening, Hospitalization, Disabling, Other)
  Sender: FDA-Public Use
  Company Number: GB-SA-2020SA028780

PATIENT

DRUGS (7)
  1. THYMOGLOBULINE [Suspect]
     Active Substance: LAPINE T-LYMPHOCYTE IMMUNE GLOBULIN
     Indication: IMMUNOMODULATORY THERAPY
  2. MESNA. [Concomitant]
     Active Substance: MESNA
     Indication: STEM CELL TRANSPLANT
     Dosage: 9000 MG, QD
     Route: 042
     Dates: start: 20190602
  3. FLUDARABINE [Concomitant]
     Active Substance: FLUDARABINE PHOSPHATE
     Indication: STEM CELL TRANSPLANT
     Dosage: 50 MG, QD
     Route: 042
     Dates: start: 20190530
  4. CYCLOPHOSPHAMIDE. [Concomitant]
     Active Substance: CYCLOPHOSPHAMIDE
     Indication: STEM CELL TRANSPLANT
     Dosage: 4720 MG, QD
     Route: 042
     Dates: start: 20190602
  5. THYMOGLOBULINE [Suspect]
     Active Substance: LAPINE T-LYMPHOCYTE IMMUNE GLOBULIN
     Indication: PROPHYLAXIS AGAINST TRANSPLANT REJECTION
     Dosage: 185 MG, QD
     Route: 042
     Dates: start: 20190602, end: 20190603
  6. METHYLPREDNISOLONE. [Concomitant]
     Active Substance: METHYLPREDNISOLONE
     Indication: STEM CELL TRANSPLANT
     Dosage: 75 MG, QD
     Route: 042
     Dates: start: 20190602
  7. ECULIZUMAB [Concomitant]
     Active Substance: ECULIZUMAB

REACTIONS (24)
  - Sepsis [Not Recovered/Not Resolved]
  - Vomiting [Recovered/Resolved]
  - Proteinuria [Recovering/Resolving]
  - Rash papular [Unknown]
  - Ileostomy [Unknown]
  - Hypotension [Unknown]
  - Glomerular filtration rate decreased [Recovering/Resolving]
  - Hypoxia [Unknown]
  - Headache [Unknown]
  - Tachycardia [Unknown]
  - Diarrhoea [Unknown]
  - Renal failure [Recovering/Resolving]
  - Pleural effusion [Unknown]
  - Contusion [Unknown]
  - Thrombotic microangiopathy [Not Recovered/Not Resolved]
  - Rash [Unknown]
  - Chills [Not Recovered/Not Resolved]
  - Tinnitus [Unknown]
  - Fluid overload [Unknown]
  - Malaise [Unknown]
  - Nausea [Unknown]
  - Dehydration [Not Recovered/Not Resolved]
  - Pyrexia [Not Recovered/Not Resolved]
  - Antibody test positive [Unknown]

NARRATIVE: CASE EVENT DATE: 20190602
